FAERS Safety Report 18467473 (Version 1)
Quarter: 2020Q4

REPORT INFORMATION
  Report Type: Spontaneous
  Country: JP (occurrence: JP)
  Receive Date: 20201105
  Receipt Date: 20201105
  Transmission Date: 20210114
  Serious: Yes (Other)
  Sender: FDA-Public Use
  Company Number: JP-ORION CORPORATION ORION PHARMA-ENTC2020-0312

PATIENT
  Age: 69 Year
  Sex: Male

DRUGS (1)
  1. STALEVO [Suspect]
     Active Substance: CARBIDOPA\ENTACAPONE\LEVODOPA
     Indication: PARKINSON^S DISEASE
     Dosage: DOSE: LEVODOPA 50 MG/CARBIDOPA 5.4 MG/ ENTACAPONE 100 MG?MORNING AND NIGHT/MORNING AND NOON TURNED T
     Route: 048
     Dates: start: 20200525

REACTIONS (4)
  - Parkinson^s disease [Unknown]
  - Asthenia [Unknown]
  - Product use issue [Unknown]
  - Joint noise [Unknown]
